FAERS Safety Report 15865901 (Version 1)
Quarter: 2019Q1

REPORT INFORMATION
  Report Type: Spontaneous
  Country: FR (occurrence: FR)
  Receive Date: 20190125
  Receipt Date: 20190125
  Transmission Date: 20190417
  Serious: Yes (Hospitalization)
  Sender: FDA-Public Use
  Company Number: FR-TEVA-2019-FR-1003546

PATIENT
  Age: 83 Year
  Sex: Male
  Weight: 56.5 kg

DRUGS (14)
  1. LOXEN (NICARDIPINE HYDROCHLORIDE) [Concomitant]
     Active Substance: NICARDIPINE HYDROCHLORIDE
  2. CANCIDAS [Concomitant]
     Active Substance: CASPOFUNGIN ACETATE
  3. PANTOPRAZOLE [Concomitant]
     Active Substance: PANTOPRAZOLE
  4. BACTRIM [Suspect]
     Active Substance: SULFAMETHOXAZOLE\TRIMETHOPRIM
     Indication: EMPYEMA
     Route: 042
     Dates: start: 20181115, end: 20181218
  5. NOVOMIX [Concomitant]
     Active Substance: INSULIN ASPART
  6. METFORMINE [Suspect]
     Active Substance: METFORMIN HYDROCHLORIDE
     Indication: DIABETES MELLITUS
     Dosage: 500 MILLIGRAM DAILY;
     Route: 048
     Dates: end: 20181218
  7. FOLINORAL [Concomitant]
     Active Substance: LEUCOVORIN CALCIUM
  8. CEFOTAXIME MYLAN 2 G, POUDRE POUR SOLUTION INJECTABLE (IM-IV) [Suspect]
     Active Substance: CEFOTAXIME SODIUM
     Indication: EMPYEMA
     Dosage: 16 GRAM DAILY;
     Route: 041
     Dates: start: 20181115, end: 20181218
  9. RIFADINE [Concomitant]
     Active Substance: RIFAMPIN
  10. OFLOXACINE [Concomitant]
     Active Substance: OFLOXACIN
  11. GALVUS 50 MG, COMPRIM? [Concomitant]
     Active Substance: VILDAGLIPTIN
  12. MOVICOL [Concomitant]
     Active Substance: POLYETHYLENE GLYCOL 3350\POTASSIUM CHLORIDE\SODIUM BICARBONATE\SODIUM CHLORIDE
  13. BACTRIM [Suspect]
     Active Substance: SULFAMETHOXAZOLE\TRIMETHOPRIM
     Indication: EMPYEMA
     Route: 048
     Dates: start: 20181218, end: 20181221
  14. LOVENOX [Suspect]
     Active Substance: ENOXAPARIN SODIUM
     Indication: PROPHYLAXIS
     Route: 058
     Dates: start: 20181127, end: 20181223

REACTIONS (1)
  - Acute kidney injury [Recovering/Resolving]

NARRATIVE: CASE EVENT DATE: 20181130
